FAERS Safety Report 9344325 (Version 1)
Quarter: 2013Q2

REPORT INFORMATION
  Report Type: Spontaneous
  Country: JP (occurrence: JP)
  Receive Date: 20130612
  Receipt Date: 20130612
  Transmission Date: 20140414
  Serious: Yes (Hospitalization)
  Sender: FDA-Public Use
  Company Number: JP-ASTELLAS-2013US006098

PATIENT
  Age: 80 Year
  Sex: Male

DRUGS (8)
  1. TARCEVA [Suspect]
     Indication: ADENOCARCINOMA PANCREAS
     Dosage: 100 MG, UID/QD
     Route: 048
     Dates: start: 20130201, end: 20130329
  2. GEMZAR [Suspect]
     Indication: ADENOCARCINOMA PANCREAS
     Dosage: 1600 MG, UID/QD
     Route: 041
     Dates: start: 20130201, end: 20130329
  3. BAYASPIRIN [Concomitant]
     Indication: CORONARY ARTERY OCCLUSION
     Dosage: 100 MG, UID/QD
     Route: 048
     Dates: start: 20121225
  4. ITOROL [Concomitant]
     Indication: CORONARY ARTERY OCCLUSION
     Dosage: 20 MG, BID
     Route: 065
     Dates: start: 20121225
  5. LEUCON                             /00300201/ [Concomitant]
     Indication: PROPHYLAXIS
     Dosage: 20 MG, TID
     Route: 065
     Dates: start: 20130215, end: 20130429
  6. MAGLAX [Concomitant]
     Indication: CONSTIPATION
     Dosage: 330 MG, TID
     Route: 048
     Dates: start: 20130315
  7. PROMAC                             /01312301/ [Concomitant]
     Indication: PROPHYLAXIS
     Dosage: 75 MG, BID
     Route: 048
     Dates: start: 20130322
  8. RILMAZAFONE HYDROCHLORIDE [Concomitant]
     Indication: INSOMNIA
     Dosage: 2 MG, UID/QD
     Route: 048
     Dates: start: 20130322

REACTIONS (3)
  - White blood cell count abnormal [Unknown]
  - Platelet count abnormal [Recovered/Resolved]
  - Interstitial lung disease [Recovered/Resolved]
